FAERS Safety Report 6473131-2 (Version None)
Quarter: 2009Q4

REPORT INFORMATION
  Report Type: 
  Country: None (occurrence: None)
  Receive Date: 20091204
  Receipt Date: 20090428
  Transmission Date: 20100525
  Serious: Yes (Hospitalization)
  Sender: FDA-Public Use
  Company Number: FR-ELI_LILLY_AND_COMPANY-FR200805003590

PATIENT
  Age: 52 Year
  Sex: Female

DRUGS (2)
  1. FORTEO [Suspect]
     Indication: OSTEOPOROSIS
     Dosage: 20 UG, DAILY (1/D)
     Route: 058
     Dates: start: 20080119
  2. ANTI-ASTHMATICS [Concomitant]
     Indication: ASTHMA
     Route: 055

REACTIONS (2)
  - COUGH [None]
  - DYSPNOEA [None]
